FAERS Safety Report 24149536 (Version 1)
Quarter: 2024Q3

REPORT INFORMATION
  Report Type: Spontaneous
  Country: QA (occurrence: QA)
  Receive Date: 20240730
  Receipt Date: 20240730
  Transmission Date: 20241016
  Serious: Yes (Hospitalization, Other)
  Sender: Haleon PLC
  Company Number: QA-HALEON-2186119

PATIENT
  Age: 41 Year
  Sex: Male

DRUGS (9)
  1. IBUPROFEN [Suspect]
     Active Substance: IBUPROFEN
     Indication: Pyrexia
  2. IBUPROFEN [Suspect]
     Active Substance: IBUPROFEN
     Indication: Pain
  3. IBUPROFEN [Suspect]
     Active Substance: IBUPROFEN
     Indication: Eye pain
  4. IBUPROFEN [Suspect]
     Active Substance: IBUPROFEN
     Indication: Ocular hyperaemia
  5. IBUPROFEN [Suspect]
     Active Substance: IBUPROFEN
     Indication: Eye discharge
  6. TOBRAMYCIN [Concomitant]
     Active Substance: TOBRAMYCIN\TOBRAMYCIN SULFATE
     Indication: Eye pain
  7. TOBRAMYCIN [Concomitant]
     Active Substance: TOBRAMYCIN\TOBRAMYCIN SULFATE
     Indication: Ocular hyperaemia
  8. TOBRAMYCIN [Concomitant]
     Active Substance: TOBRAMYCIN\TOBRAMYCIN SULFATE
     Indication: Eye discharge
  9. PIPERACILLIN AND TAZOBACTAM [Concomitant]
     Active Substance: PIPERACILLIN SODIUM\TAZOBACTAM SODIUM
     Indication: Pseudomonal sepsis
     Dosage: FOR 10 DAYS

REACTIONS (18)
  - Rash maculo-papular [Recovered/Resolved]
  - Toxic epidermal necrolysis [Recovered/Resolved]
  - Rash erythematous [Recovered/Resolved]
  - Mouth swelling [Recovered/Resolved]
  - Nasal congestion [Recovered/Resolved]
  - Skin lesion [Recovered/Resolved]
  - Mucosal inflammation [Recovered/Resolved]
  - Stridor [Recovered/Resolved]
  - Pyrexia [Recovered/Resolved]
  - Abdominal distension [Recovered/Resolved]
  - Hepatic steatosis [Recovered/Resolved]
  - Feeding intolerance [Recovered/Resolved]
  - Swollen tongue [Recovered/Resolved]
  - Leukopenia [Recovered/Resolved]
  - Acute kidney injury [Recovered/Resolved]
  - Hypertransaminasaemia [Recovered/Resolved]
  - Pericardial effusion [Recovered/Resolved]
  - Skin exfoliation [Recovered/Resolved]
